FAERS Safety Report 16671441 (Version 13)
Quarter: 2023Q2

REPORT INFORMATION
  Report Type: Report from Study
  Country: GB (occurrence: None)
  Receive Date: 20190806
  Receipt Date: 20230504
  Transmission Date: 20230722
  Serious: Yes (Hospitalization)
  Sender: FDA-Public Use
  Company Number: GB-ROCHE-2357246

PATIENT
  Age: 75 Year
  Sex: Female
  Weight: 108 kg

DRUGS (15)
  1. ATEZOLIZUMAB [Suspect]
     Active Substance: ATEZOLIZUMAB
     Indication: Malignant neoplasm of unknown primary site
     Dosage: DATE OF FIRST DOSE OF TREATMENT STUDY DRUG 1 ADMINISTERED PRIOR TO SAE/AESI ONSET: 12/JUN/2019
     Route: 041
     Dates: start: 20190612
  2. ATEZOLIZUMAB [Suspect]
     Active Substance: ATEZOLIZUMAB
     Dosage: DATE OF FIRST DOSE OF TREATMENT STUDY DRUG 1 ADMINISTERED PRIOR TO SAE/AESI ONSET: 12/JUN/2019
     Route: 041
     Dates: start: 20190503
  3. CARBOPLATIN [Suspect]
     Active Substance: CARBOPLATIN
     Indication: Malignant neoplasm of unknown primary site
     Dosage: AREA UNDER THE CURVE (AUC) DOSE?MOST RECENT DOSE PRIOR TO SAE ON 29/MAR/2019 WAS 406 MG?DATE OF FIRS
     Route: 042
     Dates: start: 20190215
  4. CARBOPLATIN [Suspect]
     Active Substance: CARBOPLATIN
     Dosage: MOST RECENT DOSE PRIOR TO SAE ON 12/JUN/2019 WAS 406 MG
     Route: 042
     Dates: start: 20190612
  5. CARBOPLATIN [Suspect]
     Active Substance: CARBOPLATIN
     Dosage: AREA UNDER THE CURVE (AUC) DOSE?MOST RECENT DOSE PRIOR TO SAE ON 12/JUN/2019 WAS 406 MG
     Route: 042
     Dates: start: 20190503
  6. PACLITAXEL [Suspect]
     Active Substance: PACLITAXEL
     Indication: Malignant neoplasm of unknown primary site
     Dosage: MOST RECENT DOSE PRIOR TO SAE ON 29/MAR/2019 WAS 349.2 MG.?DATE OF FIRST DOSE OF INDUCTION STUDY DRU
     Route: 042
     Dates: start: 20190215
  7. PACLITAXEL [Suspect]
     Active Substance: PACLITAXEL
     Dosage: MOST RECENT DOSE PRIOR TO SAE ON 12/JUN/2019 WAS 349.2 MG.
     Route: 042
     Dates: start: 20190612
  8. PACLITAXEL [Suspect]
     Active Substance: PACLITAXEL
     Dosage: MOST RECENT DOSE PRIOR TO SAE ON 12/JUN/2019 WAS 349.2 MG.
     Route: 042
     Dates: start: 20190503
  9. DEXAMETHASONE [Concomitant]
     Active Substance: DEXAMETHASONE
     Indication: Prophylaxis
     Route: 048
     Dates: start: 20190214
  10. TINZAPARIN [Concomitant]
     Active Substance: TINZAPARIN
     Route: 058
     Dates: start: 20190214
  11. OMEPRAZOLE [Concomitant]
     Active Substance: OMEPRAZOLE
     Indication: Prophylaxis
     Route: 048
     Dates: start: 20190214
  12. ONDANSETRON [Concomitant]
     Active Substance: ONDANSETRON
     Indication: Prophylaxis
     Route: 048
     Dates: start: 20190214
  13. METOCLOPRAMIDE [Concomitant]
     Active Substance: METOCLOPRAMIDE
     Indication: Prophylaxis
     Route: 048
     Dates: start: 20190214
  14. DOCUSATE SODIUM [Concomitant]
     Active Substance: DOCUSATE SODIUM
     Route: 048
     Dates: start: 20190214
  15. AMLODIPINE [Concomitant]
     Active Substance: AMLODIPINE BESYLATE
     Route: 048

REACTIONS (2)
  - Tubulointerstitial nephritis [Recovered/Resolved]
  - Diabetes mellitus [Recovered/Resolved]

NARRATIVE: CASE EVENT DATE: 20190701
